FAERS Safety Report 9469680 (Version 1)
Quarter: 2013Q3

REPORT INFORMATION
  Report Type: Spontaneous
  Country: FR (occurrence: FR)
  Receive Date: 20130822
  Receipt Date: 20130822
  Transmission Date: 20140515
  Serious: Yes (Hospitalization)
  Sender: FDA-Public Use
  Company Number: FR-JNJFOC-20130810095

PATIENT
  Sex: Female

DRUGS (6)
  1. XARELTO [Suspect]
     Indication: CEREBROVASCULAR ACCIDENT PROPHYLAXIS
     Route: 048
     Dates: start: 20130219, end: 20130415
  2. XARELTO [Suspect]
     Indication: ATRIAL FIBRILLATION
     Route: 048
     Dates: start: 20130219, end: 20130415
  3. AMIODARONE [Concomitant]
     Route: 065
  4. TRANXENE [Concomitant]
     Route: 065
  5. COVERSYL [Concomitant]
     Route: 065
  6. TARDYFERON [Concomitant]
     Route: 065

REACTIONS (3)
  - Anaemia [Recovering/Resolving]
  - Hypotension [Recovered/Resolved]
  - Malaise [Recovered/Resolved]
